FAERS Safety Report 10272139 (Version 2)
Quarter: 2014Q3

REPORT INFORMATION
  Report Type: Spontaneous
  Country: US (occurrence: US)
  Receive Date: 20140702
  Receipt Date: 20140704
  Transmission Date: 20150326
  Serious: Yes (Other)
  Sender: FDA-Public Use
  Company Number: US-IROKO PRODUCTS LTD-US-I09001-14-00141

PATIENT
  Age: 49 Year
  Sex: Female

DRUGS (1)
  1. ZORVOLEX [Suspect]
     Active Substance: DICLOFENAC
     Indication: PAIN
     Route: 048
     Dates: start: 20140613, end: 20140614

REACTIONS (3)
  - Vaginal haemorrhage [Recovered/Resolved]
  - Chest pain [Recovered/Resolved]
  - Rectal haemorrhage [Recovered/Resolved]

NARRATIVE: CASE EVENT DATE: 20140614
